FAERS Safety Report 10034339 (Version 1)
Quarter: 2014Q1

REPORT INFORMATION
  Report Type: Spontaneous
  Country: US (occurrence: None)
  Receive Date: 20140324
  Receipt Date: 20140324
  Transmission Date: 20141002
  Serious: Yes (Disabling)
  Sender: FDA-Public Use
  Company Number: None

PATIENT
  Age: 44 Year
  Sex: Female

DRUGS (1)
  1. SMZ/TMP DS [Suspect]
     Indication: ARTHROPOD BITE
     Dosage: 1 PILL, TWICE DAILY, TAKEN BY MOUTH
     Route: 048
     Dates: start: 20140313, end: 20140314

REACTIONS (8)
  - Palpitations [None]
  - Rash [None]
  - Photosensitivity reaction [None]
  - Eye pruritus [None]
  - Erythema [None]
  - Feeling hot [None]
  - Skin burning sensation [None]
  - Paraesthesia [None]
